FAERS Safety Report 25478100 (Version 1)
Quarter: 2025Q2

REPORT INFORMATION
  Report Type: Spontaneous
  Country: CN (occurrence: CN)
  Receive Date: 20250625
  Receipt Date: 20250625
  Transmission Date: 20250716
  Serious: Yes (Hospitalization)
  Sender: BAYER HEALTHCARE LLC
  Company Number: CN-BAYER-2025A084190

PATIENT
  Age: 91 Year
  Sex: Male
  Weight: 60 kg

DRUGS (4)
  1. LORATADINE [Suspect]
     Active Substance: LORATADINE
     Indication: Senile pruritus
     Dosage: 10 MG, QD
     Route: 048
     Dates: start: 20250530, end: 20250604
  2. LEVOCETIRIZINE HYDROCHLORIDE [Suspect]
     Active Substance: LEVOCETIRIZINE HYDROCHLORIDE
     Indication: Senile pruritus
     Dosage: 5 MG, QD
     Route: 048
     Dates: start: 20250603, end: 20250603
  3. CALCIUM GLUCONATE [Concomitant]
     Active Substance: CALCIUM GLUCONATE
     Indication: Senile pruritus
     Dosage: 1 G, QD
     Route: 042
     Dates: start: 20250530, end: 20250601
  4. SODIUM CHLORIDE [Concomitant]
     Active Substance: SODIUM CHLORIDE
     Indication: Vehicle solution use
     Dosage: 20 ML, QD
     Route: 042
     Dates: start: 20250530, end: 20250601

REACTIONS (3)
  - Hepatic function abnormal [Recovering/Resolving]
  - Asthenia [None]
  - Decreased appetite [None]

NARRATIVE: CASE EVENT DATE: 20250604
